FAERS Safety Report 9880800 (Version 1)
Quarter: 2014Q1

REPORT INFORMATION
  Report Type: Spontaneous
  Country: US (occurrence: US)
  Receive Date: 20140207
  Receipt Date: 20140207
  Transmission Date: 20141002
  Serious: No
  Sender: FDA-Public Use
  Company Number: US-PFIZER INC-2014031812

PATIENT
  Age: 62 Year
  Sex: Female

DRUGS (6)
  1. LOMOTIL [Suspect]
     Indication: DIARRHOEA
     Dosage: UNK
     Dates: start: 2013
  2. LOMOTIL [Suspect]
     Indication: VOMITING
  3. CHOLESTYRAMINE [Suspect]
     Indication: DIARRHOEA
     Dosage: 1/2 PACKET/DAY
     Dates: start: 20131209
  4. CHOLESTYRAMINE [Suspect]
     Dosage: INCREASED TO 5 PACKETS PER DAY
     Dates: end: 20131220
  5. CYMBALTA [Concomitant]
     Indication: DEPRESSED MOOD
     Dosage: UNK
     Dates: start: 201310
  6. ACIDOPHILUS [Concomitant]
     Indication: DIARRHOEA
     Dosage: UNK

REACTIONS (3)
  - Drug ineffective [Not Recovered/Not Resolved]
  - Body temperature increased [Recovered/Resolved]
  - Abnormal faeces [Unknown]
